FAERS Safety Report 12917761 (Version 3)
Quarter: 2016Q4

REPORT INFORMATION
  Report Type: Spontaneous
  Country: US (occurrence: US)
  Receive Date: 20161107
  Receipt Date: 20161221
  Transmission Date: 20170207
  Serious: No
  Sender: FDA-Public Use
  Company Number: US-PFIZER INC-2016423044

PATIENT
  Age: 56 Year
  Sex: Female

DRUGS (16)
  1. ASPIRIN-ACETAMINOPHEN-CAFFEINE [Concomitant]
     Dosage: UNK, AS NEEDED
  2. BUTALBITAL APAP CAFFEINE [Concomitant]
     Indication: HEADACHE
     Dosage: UNK, AS NEEDED (1 OR 2 TABLET(S) EVERY 4-6 HR; BUTALBITAL: 50; ACETAMINOPHEN: 325; CAFFEINE: 40)
  3. CLOBETASOL [Concomitant]
     Active Substance: CLOBETASOL
     Dosage: AS NEEDED (0.05 %; ONCE DAILY)
     Route: 061
  4. MECLIZINE [Concomitant]
     Active Substance: MECLIZINE HYDROCHLORIDE
     Dosage: AS NEEDED (1 OR 2 TABLETS 50 MG UPTO THREE TIMES DAILY)
  5. TOPAMAX [Concomitant]
     Active Substance: TOPIRAMATE
     Dosage: 150 MG, DAILY (TAKE 50 MG Q AM, 100MG Q PM)
     Route: 048
  6. OMEPRAZOLE. [Concomitant]
     Active Substance: OMEPRAZOLE
     Indication: DYSPEPSIA
     Dosage: 20 MG, 1X/DAY
     Route: 048
  7. TRIAMCINOLONE ACETONIDE. [Concomitant]
     Active Substance: TRIAMCINOLONE ACETONIDE
     Indication: RASH
     Dosage: AS NEEDED (0.1 %)
     Route: 061
  8. LYRICA [Suspect]
     Active Substance: PREGABALIN
     Dosage: 100 MG, 2X/DAY
     Route: 048
  9. ALPRAZOLAM. [Concomitant]
     Active Substance: ALPRAZOLAM
     Indication: ANXIETY
     Dosage: 0.25 MG, AS NEEDED (TWICE DAILY AS NEEDED)
     Route: 048
  10. CETIRIZINE [Concomitant]
     Active Substance: CETIRIZINE HYDROCHLORIDE
     Indication: DRUG HYPERSENSITIVITY
     Dosage: 10 MG, 1X/DAY
     Route: 048
  11. LYRICA [Suspect]
     Active Substance: PREGABALIN
     Indication: NEURALGIA
     Dosage: 100 MG, 1X/DAY
     Route: 048
  12. OMEPRAZOLE. [Concomitant]
     Active Substance: OMEPRAZOLE
     Indication: DYSPEPSIA
  13. VITAMIN D3 [Concomitant]
     Active Substance: CHOLECALCIFEROL
     Dosage: 2000 IU, 1X/DAY
     Route: 048
  14. SERTRALINE [Concomitant]
     Active Substance: SERTRALINE HYDROCHLORIDE
     Dosage: 100 MG, DAILY (AT BEDTIME)
  15. ASPIRIN. [Concomitant]
     Active Substance: ASPIRIN
     Dosage: 81 MG, 1X/DAY
  16. METOPROLOL TARTRATE. [Concomitant]
     Active Substance: METOPROLOL TARTRATE
     Dosage: 25 MG, 2X/DAY (1/2 TABLET(S) (25 MG) )
     Route: 048

REACTIONS (1)
  - Drug ineffective [Unknown]
